FAERS Safety Report 4297192-4 (Version None)
Quarter: 2004Q1

REPORT INFORMATION
  Report Type: 
  Country: None (occurrence: None)
  Receive Date: 20040217
  Receipt Date: 20040204
  Transmission Date: 20041129
  Serious: Yes (Other)
  Sender: FDA-Public Use
  Company Number: 2004007478

PATIENT
  Sex: Female

DRUGS (1)
  1. SUDAFED COLD AND COUGH EXTRA STRENGTH (DEXTROMETHORPHAN, PSEUDOEPHEDRI [Suspect]
     Dosage: ORAL
     Route: 048

REACTIONS (4)
  - HAEMATOTOXICITY [None]
  - MEDICATION ERROR [None]
  - POISONING [None]
  - VOMITING [None]
